FAERS Safety Report 24056736 (Version 1)
Quarter: 2024Q3

REPORT INFORMATION
  Report Type: Report from Study
  Country: BE (occurrence: BE)
  Receive Date: 20240705
  Receipt Date: 20240705
  Transmission Date: 20241017
  Serious: Yes (Hospitalization, Other)
  Sender: ABBVIE
  Company Number: BE-ABBVIE-5826638

PATIENT
  Sex: Female
  Weight: 56 kg

DRUGS (8)
  1. CARBIDOPA\LEVODOPA [Suspect]
     Active Substance: CARBIDOPA\LEVODOPA
     Indication: Parkinson^s disease
     Route: 050
     Dates: start: 20170517
  2. CARBIDOPA\LEVODOPA [Suspect]
     Active Substance: CARBIDOPA\LEVODOPA
     Dosage: MD: 1.0ML, CD: 2.7ML/H (AM), CD: 1.4ML/H (PM), ED: 2.00ML DURING 16 HOURS
     Route: 050
     Dates: start: 20231201, end: 20240201
  3. CARBIDOPA\LEVODOPA [Suspect]
     Active Substance: CARBIDOPA\LEVODOPA
     Dosage: MD: 2.0ML, CD: 2.6ML/H (AM), CD: 1.6ML/H (PM), ED: 2.00ML DURING 16 HOURS
     Route: 050
     Dates: start: 20240214
  4. CARBIDOPA\LEVODOPA [Suspect]
     Active Substance: CARBIDOPA\LEVODOPA
     Dosage: MD: 1.0ML, CD: 2.5ML/H (AM), CD: 1.4ML/H (PM), ED: 2.00ML DURING 16 HOURS
     Route: 050
     Dates: start: 20231108, end: 20231201
  5. CARBIDOPA\LEVODOPA [Suspect]
     Active Substance: CARBIDOPA\LEVODOPA
     Dosage: MD: 1.0ML, CD: 2.8ML/H (AM), CD: 1.6ML/H (PM), ED: 2.00ML DURING 16 HOURS
     Route: 050
     Dates: start: 20240201, end: 20240214
  6. BENSERAZIDE\LEVODOPA [Concomitant]
     Active Substance: BENSERAZIDE\LEVODOPA
     Indication: Product used for unknown indication
     Dosage: FORM STRENGTH: 390 MILLIGRAM?FREQUENCY TEXT: AT 16.00
  7. REQUIP [Concomitant]
     Active Substance: ROPINIROLE HYDROCHLORIDE
     Indication: Product used for unknown indication
     Dosage: FORM STRENGTH: 16 MILLIGRAM?FREQUENCY TEXT: AT 8 HOUR
  8. XANAX [Concomitant]
     Active Substance: ALPRAZOLAM
     Indication: Product used for unknown indication
     Dosage: FORM STRENGTH: 0.5 MILLIGRAM?FREQUENCY TEXT: AT 22.00

REACTIONS (1)
  - Acute leukaemia [Unknown]
